FAERS Safety Report 7136717-8 (Version None)
Quarter: 2010Q4

REPORT INFORMATION
  Report Type: 
  Country: None (occurrence: None)
  Receive Date: 20101206
  Receipt Date: 20080111
  Transmission Date: 20110411
  Serious: Yes (Death, Hospitalization)
  Sender: FDA-Public Use
  Company Number: US-ACTELION-A-NJ2007-18008

PATIENT

DRUGS (1)
  1. ILOPROST INHALATION SOLUTION UNKNOWN US [Suspect]
     Indication: PULMONARY HYPERTENSION
     Route: 055
     Dates: start: 20060926, end: 20071201

REACTIONS (6)
  - DEATH [None]
  - DYSPHONIA [None]
  - OROPHARYNGEAL PAIN [None]
  - PNEUMONIA STAPHYLOCOCCAL [None]
  - PULMONARY EMBOLISM [None]
  - URINARY TRACT INFECTION [None]
